FAERS Safety Report 6786124-2 (Version None)
Quarter: 2010Q2

REPORT INFORMATION
  Report Type: 
  Country: None (occurrence: None)
  Receive Date: 20100621
  Receipt Date: 20100621
  Transmission Date: 20101027
  Serious: Yes (Other)
  Sender: FDA-Public Use
  Company Number: None

PATIENT
  Age: 42 Year
  Sex: Female
  Weight: 79.3795 kg

DRUGS (1)
  1. OXYCODONE/APAP 5/325 W/F DRUG PERCOCET 5/325 [Suspect]
     Indication: PAIN MANAGEMENT
     Dosage: 30, 1 TO 2 TAB EV 6 HR PO
     Route: 048
     Dates: start: 20100313, end: 20100316

REACTIONS (2)
  - CONSTIPATION [None]
  - FAECALOMA [None]
